FAERS Safety Report 18361537 (Version 1)
Quarter: 2020Q4

REPORT INFORMATION
  Report Type: Report from Study
  Country: US (occurrence: US)
  Receive Date: 20201008
  Receipt Date: 20201008
  Transmission Date: 20210114
  Serious: Yes (Other)
  Sender: FDA-Public Use
  Company Number: US-GLAXOSMITHKLINE-US2020GSK198907

PATIENT
  Sex: Male

DRUGS (3)
  1. NIRAPARIB [Suspect]
     Active Substance: NIRAPARIB
     Dosage: UNK
     Dates: start: 20200928
  2. NIRAPARIB [Suspect]
     Active Substance: NIRAPARIB
     Indication: PANCREATIC CARCINOMA METASTATIC
     Dosage: UNK
     Dates: start: 20200914
  3. DOSTARLIMAB [Suspect]
     Active Substance: DOSTARLIMAB
     Indication: PANCREATIC CARCINOMA METASTATIC

REACTIONS (2)
  - Delirium [Unknown]
  - Tachycardia [Unknown]
